FAERS Safety Report 4379471-5 (Version None)
Quarter: 2004Q2

REPORT INFORMATION
  Report Type: 
  Country: None (occurrence: None)
  Receive Date: 20040617
  Receipt Date: 20040611
  Transmission Date: 20050107
  Serious: Yes (Death, Life-Threatening, Hospitalization, Other)
  Sender: FDA-Public Use
  Company Number: US-BRISTOL-MYERS SQUIBB COMPANY-12612115

PATIENT
  Age: 46 Year
  Sex: Male
  Weight: 84 kg

DRUGS (10)
  1. CISPLATIN [Suspect]
     Indication: SMALL CELL LUNG CANCER STAGE UNSPECIFIED
     Route: 042
     Dates: start: 20040505
  2. PEMETREXED DISODIUM [Suspect]
     Indication: SMALL CELL LUNG CANCER STAGE UNSPECIFIED
     Route: 042
     Dates: start: 20040505
  3. FOLIC ACID [Concomitant]
     Indication: PREMEDICATION
     Dates: start: 20040428
  4. MILK OF MAGNESIA TAB [Concomitant]
     Indication: CONSTIPATION
     Dates: start: 20040429
  5. MYLANTA [Concomitant]
     Indication: FLATULENCE
     Dates: start: 20040429, end: 20040503
  6. OXYFAST [Concomitant]
     Indication: PAIN
     Dates: start: 20040428, end: 20040503
  7. DURAGESIC [Concomitant]
     Indication: PAIN
     Dates: start: 20040428, end: 20040503
  8. METOPROLOL TARTRATE [Concomitant]
     Indication: HYPERTENSION
     Dates: start: 20040401
  9. OXYCONTIN [Concomitant]
  10. VITAMIN B-12 [Concomitant]
     Indication: NUTRITIONAL SUPPORT
     Dates: start: 20040428, end: 20040428

REACTIONS (10)
  - ANOREXIA [None]
  - DEHYDRATION [None]
  - HYPOVOLAEMIA [None]
  - ILEUS [None]
  - LARGE INTESTINE PERFORATION [None]
  - MALNUTRITION [None]
  - NAUSEA [None]
  - PERITONITIS [None]
  - SEPTIC SHOCK [None]
  - VOMITING [None]
